FAERS Safety Report 7207614-4 (Version None)
Quarter: 2011Q1

REPORT INFORMATION
  Report Type: 
  Country: None (occurrence: None)
  Receive Date: 20110103
  Receipt Date: 20101227
  Transmission Date: 20110831
  Serious: Yes (Life-Threatening)
  Sender: FDA-Public Use
  Company Number: JP-ASTRAZENECA-2010SE42338

PATIENT
  Age: 28041 Day
  Sex: Female
  Weight: 40 kg

DRUGS (5)
  1. LIPITOR [Concomitant]
     Route: 048
  2. ARIMIDEX [Suspect]
     Indication: BREAST CANCER
     Route: 048
     Dates: start: 20080402, end: 20100902
  3. AMARYL [Concomitant]
     Indication: DIABETES MELLITUS
     Route: 048
  4. BLOPRESS [Concomitant]
     Indication: HYPERTENSION
     Route: 048
  5. NOVOLIN R [Concomitant]
     Indication: DIABETES MELLITUS
     Dosage: 6U/DOSE, DAILY
     Route: 058

REACTIONS (3)
  - MESENTERIC VEIN THROMBOSIS [None]
  - GASTROINTESTINAL NECROSIS [None]
  - PORTAL VEIN THROMBOSIS [None]
